FAERS Safety Report 8543687-4 (Version None)
Quarter: 2012Q3

REPORT INFORMATION
  Report Type: 
  Country: None (occurrence: None)
  Receive Date: 20120719
  Receipt Date: 20120719
  Transmission Date: 20120928
  Serious: Yes (Other)
  Sender: FDA-Public Use
  Company Number: None

PATIENT
  Age: 38 Year
  Sex: Female
  Weight: 58.9676 kg

DRUGS (3)
  1. LEVOTHYROXINE SODIUM [Suspect]
     Indication: HYPOTHYROIDISM
     Dates: start: 20051205, end: 20111206
  2. LEVOTHYROXINE SODIUM [Suspect]
     Indication: AUTOIMMUNE THYROIDITIS
     Dates: start: 20051205, end: 20111206
  3. LEVOTHYROXINE SODIUM [Suspect]
     Indication: GOITRE
     Dates: start: 20051205, end: 20111206

REACTIONS (4)
  - ELECTROCARDIOGRAM QT PROLONGED [None]
  - HYPERTHYROIDISM [None]
  - CARDIAC ARREST [None]
  - PRODUCT SUBSTITUTION ISSUE [None]
